FAERS Safety Report 10696620 (Version 3)
Quarter: 2015Q1

REPORT INFORMATION
  Report Type: Spontaneous
  Country: US (occurrence: US)
  Receive Date: 20150107
  Receipt Date: 20150226
  Transmission Date: 20150721
  Serious: No
  Sender: FDA-Public Use
  Company Number: US-ASTRAZENECA-2014SE96959

PATIENT
  Age: 27148 Day
  Sex: Female
  Weight: 86.2 kg

DRUGS (2)
  1. AZELASTINE HCL [Concomitant]
     Active Substance: AZELASTINE HYDROCHLORIDE
     Indication: BRONCHIECTASIS
     Route: 045
     Dates: start: 2014
  2. PULMICORT FLEXHALER [Suspect]
     Active Substance: BUDESONIDE
     Indication: BRONCHIECTASIS
     Dosage: 180 MCG, 1 PUFF BID
     Route: 055
     Dates: start: 20141209

REACTIONS (6)
  - Intentional product misuse [Unknown]
  - Cough [Unknown]
  - Wheezing [Unknown]
  - Off label use [Unknown]
  - Bronchial secretion retention [Unknown]
  - Circumstance or information capable of leading to medication error [Unknown]

NARRATIVE: CASE EVENT DATE: 20141209
